FAERS Safety Report 7386055-3 (Version None)
Quarter: 2011Q1

REPORT INFORMATION
  Report Type: 
  Country: None (occurrence: None)
  Receive Date: 20110331
  Receipt Date: 20110324
  Transmission Date: 20110831
  Serious: Yes (Other)
  Sender: FDA-Public Use
  Company Number: US-ALLERGAN-1104206US

PATIENT
  Sex: Female

DRUGS (1)
  1. ACUVAIL [Suspect]
     Indication: POSTOPERATIVE CARE
     Dosage: 2 GTT, QD
     Dates: start: 20110323, end: 20110324

REACTIONS (1)
  - HAEMATEMESIS [None]
